FAERS Safety Report 8429457-6 (Version None)
Quarter: 2012Q2

REPORT INFORMATION
  Report Type: 
  Country: None (occurrence: None)
  Receive Date: 20120612
  Receipt Date: 20120604
  Transmission Date: 20120825
  Serious: Yes (Hospitalization)
  Sender: FDA-Public Use
  Company Number: US-ABBOTT-12P-163-0942219-00

PATIENT
  Sex: Male

DRUGS (2)
  1. ZEMPLAR [Suspect]
     Indication: RENAL FAILURE CHRONIC
     Route: 048
     Dates: start: 20110901
  2. UNKNOWN BETA BLOCKERS [Concomitant]
     Indication: CARDIAC DISORDER
     Route: 048

REACTIONS (1)
  - MYOCARDIAL INFARCTION [None]
